FAERS Safety Report 5979188-7 (Version None)
Quarter: 2008Q4

REPORT INFORMATION
  Report Type: 
  Country: None (occurrence: None)
  Receive Date: 20081204
  Receipt Date: 20080408
  Transmission Date: 20090506
  Serious: No
  Sender: FDA-Public Use
  Company Number: US-ABBOTT-08P-163-0446236-00

PATIENT
  Sex: Female
  Weight: 65.83 kg

DRUGS (5)
  1. TRICOR [Suspect]
     Indication: BLOOD CHOLESTEROL INCREASED
     Route: 048
     Dates: start: 20060101
  2. TRICOR [Suspect]
     Dosage: IN THE MORNING
     Route: 048
     Dates: start: 20080201
  3. PAROXETINE HCL [Suspect]
     Indication: ANTIDEPRESSANT THERAPY
  4. SIMVASTATIN [Suspect]
     Indication: BLOOD CHOLESTEROL INCREASED
     Dosage: AT BED TIME
     Route: 048
  5. LEVOTHYROXINE SODIUM [Concomitant]
     Indication: HYPOTHYROIDISM
     Dates: start: 19880101

REACTIONS (3)
  - FATIGUE [None]
  - HYPOMETABOLISM [None]
  - INSOMNIA [None]
